FAERS Safety Report 10066250 (Version 1)
Quarter: 2014Q2

REPORT INFORMATION
  Report Type: Spontaneous
  Country: US (occurrence: None)
  Receive Date: 20140402
  Receipt Date: 20140402
  Transmission Date: 20141212
  Serious: Yes (Hospitalization)
  Sender: FDA-Public Use
  Company Number: 2013STPI000245

PATIENT
  Age: 9 Year
  Sex: Male

DRUGS (1)
  1. ONCASPAR [Suspect]
     Indication: LYMPHOCYTIC LEUKAEMIA
     Route: 042
     Dates: start: 20130620, end: 20130620

REACTIONS (6)
  - Anaphylactic reaction [None]
  - Abdominal discomfort [None]
  - Vomiting [None]
  - Cough [None]
  - Throat tightness [None]
  - Pallor [None]
